FAERS Safety Report 5717400-X (Version None)
Quarter: 2008Q2

REPORT INFORMATION
  Report Type: 
  Country: None (occurrence: None)
  Receive Date: 20080424
  Receipt Date: 20080424
  Transmission Date: 20081010
  Serious: Yes (Other)
  Sender: FDA-Public Use
  Company Number: None

PATIENT
  Age: 48 Year
  Sex: Male
  Weight: 90.7194 kg

DRUGS (2)
  1. CHANTIX [Suspect]
     Indication: SMOKING CESSATION THERAPY
     Dosage: 2 TABLETS TWICE DAILY PO
     Route: 048
     Dates: start: 20061102, end: 20061205
  2. CHANTIX [Suspect]
     Indication: SMOKING CESSATION THERAPY
     Dosage: 2 TABLETS TWICE DAILY PO
     Route: 048
     Dates: start: 20070809, end: 20070825

REACTIONS (8)
  - AFFECT LABILITY [None]
  - AGGRESSION [None]
  - DEPRESSION [None]
  - DISTURBANCE IN ATTENTION [None]
  - LOSS OF EMPLOYMENT [None]
  - OBSESSIVE-COMPULSIVE DISORDER [None]
  - SOCIAL AVOIDANT BEHAVIOUR [None]
  - VIOLENCE-RELATED SYMPTOM [None]
